FAERS Safety Report 10156822 (Version 1)
Quarter: 2014Q2

REPORT INFORMATION
  Report Type: Spontaneous
  Country: US (occurrence: None)
  Receive Date: 20140506
  Receipt Date: 20140506
  Transmission Date: 20141212
  Serious: Yes (Disabling, Other)
  Sender: FDA-Public Use
  Company Number: None

PATIENT
  Age: 53 Year
  Sex: Female
  Weight: 67.59 kg

DRUGS (1)
  1. LEVOFLOXACIN [Suspect]
     Indication: URINARY TRACT INFECTION
     Route: 048
     Dates: start: 20140110, end: 20140115

REACTIONS (10)
  - Peripheral swelling [None]
  - Pain [None]
  - Haemorrhage [None]
  - Uterine haemorrhage [None]
  - Paraesthesia [None]
  - Pain in extremity [None]
  - Neuropathy peripheral [None]
  - Arthralgia [None]
  - Pain in extremity [None]
  - Pain in extremity [None]
